FAERS Safety Report 9871233 (Version 1)
Quarter: 2014Q1

REPORT INFORMATION
  Report Type: Spontaneous
  Country: US (occurrence: US)
  Receive Date: 20140205
  Receipt Date: 20140205
  Transmission Date: 20141002
  Serious: Yes (Death)
  Sender: FDA-Public Use
  Company Number: US-GLAXOSMITHKLINE-A1058520A

PATIENT
  Age: 67 Year
  Sex: Female

DRUGS (3)
  1. AVANDIA [Suspect]
     Indication: TYPE 2 DIABETES MELLITUS
     Route: 048
  2. CONCURRENT MEDICATIONS [Concomitant]
  3. INSULIN [Concomitant]

REACTIONS (1)
  - Myocardial infarction [Fatal]
